FAERS Safety Report 5069767-6 (Version None)
Quarter: 2006Q3

REPORT INFORMATION
  Report Type: 
  Country: None (occurrence: None)
  Receive Date: 20060803
  Receipt Date: 20060721
  Transmission Date: 20061208
  Serious: Yes (Hospitalization)
  Sender: FDA-Public Use
  Company Number: US-GLAXOSMITHKLINE-A0613124A

PATIENT
  Age: 64 Year
  Sex: Female

DRUGS (24)
  1. SEREVENT [Suspect]
     Indication: CHRONIC OBSTRUCTIVE PULMONARY DISEASE
     Dosage: 2PUFF TWICE PER DAY
     Route: 055
     Dates: start: 20030101
  2. FLUTICASONE PROPIONATE [Suspect]
     Dosage: 2SPR TWICE PER DAY
     Route: 045
     Dates: start: 20060601
  3. FLORINEF [Concomitant]
  4. LOPRESSOR [Concomitant]
  5. PROVIGIL [Concomitant]
  6. XANAX [Concomitant]
  7. ACTOS [Concomitant]
  8. MAGNESIUM OXIDE [Concomitant]
  9. SYNTHROID [Concomitant]
  10. PROTONIX [Concomitant]
  11. PEPCID [Concomitant]
  12. ALBUTEROL SPIROS [Concomitant]
  13. ALDACTONE [Concomitant]
  14. ZOCOR [Concomitant]
  15. PLAVIX [Concomitant]
  16. AMBIEN [Concomitant]
  17. POTASSIUM [Concomitant]
  18. LASIX [Concomitant]
  19. NEURONTIN [Concomitant]
  20. ZETIA [Concomitant]
  21. QUININE SULFATE [Concomitant]
  22. WELCHOL [Concomitant]
  23. TRICOR [Concomitant]
  24. NITROGLYCERIN [Concomitant]

REACTIONS (2)
  - DRUG INEFFECTIVE [None]
  - PRESCRIBED OVERDOSE [None]
